FAERS Safety Report 9822801 (Version 1)
Quarter: 2014Q1

REPORT INFORMATION
  Report Type: Spontaneous
  Country: US (occurrence: US)
  Receive Date: 20140116
  Receipt Date: 20140116
  Transmission Date: 20141002
  Serious: No
  Sender: FDA-Public Use
  Company Number: US-009507513-1401USA005438

PATIENT
  Sex: Female

DRUGS (1)
  1. TICE BCG LIVE [Suspect]

REACTIONS (3)
  - Accidental exposure to product [Unknown]
  - Product quality issue [Unknown]
  - No adverse event [Unknown]
